FAERS Safety Report 4975136-7 (Version None)
Quarter: 2006Q2

REPORT INFORMATION
  Report Type: 
  Country: None (occurrence: None)
  Receive Date: 20060411
  Receipt Date: 20060328
  Transmission Date: 20061013
  Serious: Yes (Hospitalization)
  Sender: FDA-Public Use
  Company Number: 216893

PATIENT
  Age: 54 Year
  Sex: Female

DRUGS (2)
  1. EFALIZUMAB(EFALIZUMAB) PWDR + SOLVENT, INJEDTION SOLN, 125MG [Suspect]
     Indication: PSORIASIS
     Dosage: 1 MG/KG, 1/WEEK, SUBCUTANEOUS
     Route: 058
     Dates: start: 20050401, end: 20050804
  2. NAPROSYN [Concomitant]

REACTIONS (7)
  - BLOOD GLUCOSE DECREASED [None]
  - BLOOD GLUCOSE INCREASED [None]
  - ORAL INTAKE REDUCED [None]
  - PHARYNGOLARYNGEAL PAIN [None]
  - RASH PAPULAR [None]
  - SYNCOPE VASOVAGAL [None]
  - VIRAL INFECTION [None]
